FAERS Safety Report 9535772 (Version 4)
Quarter: 2013Q4

REPORT INFORMATION
  Report Type: Report from Study
  Country: US (occurrence: US)
  Receive Date: 20130919
  Receipt Date: 20131023
  Transmission Date: 20140711
  Serious: No
  Sender: FDA-Public Use
  Company Number: US-009507513-1309USA004366

PATIENT
  Age: 10 Year
  Sex: Male
  Weight: 35.83 kg

DRUGS (4)
  1. ASENAPINE MALEATE-BIPOLAR DISORDER [Suspect]
     Indication: BIPOLAR I DISORDER
     Dosage: 2.5 MG, BID
     Route: 048
     Dates: start: 20130709, end: 20130728
  2. SINGULAIR [Concomitant]
     Indication: HYPERSENSITIVITY
     Dosage: 5 MG, QHS
     Route: 048
     Dates: start: 2006
  3. ALBUTEROL [Concomitant]
     Indication: ASTHMA
     Dosage: 2 PUFFS, PRN
     Route: 048
     Dates: start: 2006
  4. TRIAMCINOLONE [Concomitant]
     Indication: ALOPECIA
     Dosage: UNK UNK, BID
     Route: 061
     Dates: start: 2004

REACTIONS (1)
  - Rash [Recovered/Resolved]
